FAERS Safety Report 13466590 (Version 1)
Quarter: 2017Q2

REPORT INFORMATION
  Report Type: Spontaneous
  Country: US (occurrence: US)
  Receive Date: 20170420
  Receipt Date: 20170420
  Transmission Date: 20170830
  Serious: Yes (Hospitalization)
  Sender: FDA-Public Use
  Company Number: None

PATIENT
  Age: 63 Year
  Sex: Female

DRUGS (1)
  1. AMPYRA [Suspect]
     Active Substance: DALFAMPRIDINE
     Indication: MULTIPLE SCLEROSIS
     Route: 048
     Dates: start: 20100527

REACTIONS (6)
  - Neurogenic bladder [None]
  - Fall [None]
  - Gait disturbance [None]
  - Bacteraemia [None]
  - Fracture [None]
  - Streptococcus test positive [None]

NARRATIVE: CASE EVENT DATE: 20170414
